FAERS Safety Report 23054139 (Version 1)
Quarter: 2023Q4

REPORT INFORMATION
  Report Type: Spontaneous
  Country: US (occurrence: None)
  Receive Date: 20231010
  Receipt Date: 20231010
  Transmission Date: 20240109
  Serious: Yes (Life-Threatening, Other)
  Sender: FDA-Public Use
  Company Number: None

PATIENT
  Age: 18 Year
  Sex: Female
  Weight: 57.8 kg

DRUGS (1)
  1. DEXTRAN [Suspect]
     Active Substance: DEXTRAN
     Indication: Iron deficiency anaemia
     Dosage: OTHER FREQUENCY : ONCE (TEST DOSE);?
     Route: 040
     Dates: start: 20231009, end: 20231009

REACTIONS (5)
  - Dyspnoea [None]
  - Hypoxia [None]
  - Foetal heart rate decreased [None]
  - Infusion related reaction [None]
  - Caesarean section [None]

NARRATIVE: CASE EVENT DATE: 20231009
